FAERS Safety Report 11231297 (Version 1)
Quarter: 2015Q3

REPORT INFORMATION
  Report Type: Spontaneous
  Country: US (occurrence: US)
  Receive Date: 20150701
  Receipt Date: 20150701
  Transmission Date: 20151125
  Serious: Yes (Hospitalization)
  Sender: FDA-Public Use
  Company Number: US-SA-2015SA092012

PATIENT
  Sex: Male

DRUGS (1)
  1. LANTUS [Suspect]
     Active Substance: INSULIN GLARGINE
     Indication: DIABETES MELLITUS
     Route: 065

REACTIONS (9)
  - Nervous system disorder [Unknown]
  - Blood glucose increased [Unknown]
  - Dizziness [Unknown]
  - Hospitalisation [Unknown]
  - Feeling abnormal [Unknown]
  - Nausea [Unknown]
  - Influenza [Unknown]
  - Hyperhidrosis [Unknown]
  - Vision blurred [Unknown]

NARRATIVE: CASE EVENT DATE: 2015
